FAERS Safety Report 8782278 (Version 2)
Quarter: 2012Q4

REPORT INFORMATION
  Report Type: 
  Country: US (occurrence: US)
  Receive Date: 20120913
  Receipt Date: 20121018
  Transmission Date: 20130627
  Serious: No
  Sender: FDA-Public Use
  Company Number: US-VERTEX PHARMACEUTICAL INC.-AE-2012-010487

PATIENT
  Age: 58 None
  Sex: Male
  Weight: 78 kg

DRUGS (15)
  1. VX-950 [Suspect]
     Indication: HEPATITIS C
     Dosage: 750 mg, tid
     Dates: start: 20120717, end: 2012
  2. RIBAVIRIN [Concomitant]
     Indication: HEPATITIS C
     Dosage: 400 mg in am, 600 mg in pm
     Route: 048
     Dates: start: 20120717
  3. PEGASYS [Concomitant]
     Indication: HEPATITIS C
     Dosage: 180 ?g, UNK
     Route: 058
     Dates: start: 20120717
  4. AMLODIPINE [Concomitant]
     Indication: HYPERTENSION
     Dosage: 5 mg, qd
     Route: 048
  5. AMLODIPINE [Concomitant]
     Dosage: 2.5 mg, UNK
  6. CITALOPRAM [Concomitant]
     Indication: DEPRESSION
     Dosage: 20 mg, qd
     Route: 048
  7. OMEPRAZOLE [Concomitant]
     Indication: GASTROOESOPHAGEAL REFLUX DISEASE
     Dosage: 20 mg, qd
  8. TEMAZEPAM [Concomitant]
     Dosage: 15 mg,
     Route: 048
  9. LORTAB                             /00607101/ [Concomitant]
     Dosage: 5 mg, UNK
  10. VITAMIN B12                        /00056201/ [Concomitant]
     Dosage: 1000 UNK, UNK
  11. VITAMIN D3 [Concomitant]
     Dosage: 2000 ut, UNK
  12. OMEGA 3                            /01334101/ [Concomitant]
     Dosage: 1200 mg, UNK
  13. METHYLPRED [Concomitant]
     Indication: PAIN
     Dosage: 4 mg, UNK
  14. VICODIN [Concomitant]
     Dosage: 7.5 mg, bid
  15. CORTISONE [Concomitant]
     Indication: INFLAMMATION

REACTIONS (11)
  - Headache [Unknown]
  - Hypertension [Unknown]
  - Oropharyngeal pain [Not Recovered/Not Resolved]
  - Back pain [Unknown]
  - Burning sensation [Unknown]
  - Restlessness [Unknown]
  - Constipation [Unknown]
  - Fatigue [Not Recovered/Not Resolved]
  - Anaemia [Not Recovered/Not Resolved]
  - Pruritus generalised [Unknown]
  - Dysgeusia [Not Recovered/Not Resolved]
